FAERS Safety Report 7113400-6 (Version None)
Quarter: 2010Q4

REPORT INFORMATION
  Report Type: 
  Country: None (occurrence: None)
  Receive Date: 20101119
  Receipt Date: 20101116
  Transmission Date: 20110411
  Serious: Yes (Death)
  Sender: FDA-Public Use
  Company Number: PHHY2010JP57406

PATIENT
  Sex: Male
  Weight: 55 kg

DRUGS (11)
  1. EXJADE [Suspect]
     Indication: IRON OVERLOAD
     Dosage: 500 MG, QD
     Route: 048
     Dates: start: 20091016, end: 20091119
  2. EXJADE [Suspect]
     Dosage: 1000 MG, QD
     Route: 048
     Dates: start: 20091120
  3. HYDREA [Concomitant]
     Indication: MYELODYSPLASTIC SYNDROME
     Dosage: 2000 MG, UNK
     Route: 048
     Dates: start: 20091016, end: 20100416
  4. LASTET [Concomitant]
     Indication: MYELODYSPLASTIC SYNDROME
     Dosage: 100 MG, UNK
     Route: 048
     Dates: start: 20091016, end: 20100416
  5. CIPROFLOXACIN HCL [Concomitant]
     Indication: PROPHYLAXIS
     Dosage: 600 MG, UNK
     Route: 048
     Dates: start: 20091016, end: 20100416
  6. FAMOTIDINE [Concomitant]
     Indication: HEPATITIS C
     Dosage: 40 MG, UNK
     Route: 048
     Dates: start: 20091016, end: 20100416
  7. ALLOPURINOL [Concomitant]
     Indication: HEPATITIS C
     Dosage: 200 MG, UNK
     Route: 048
     Dates: start: 20091016, end: 20100416
  8. LAC B [Concomitant]
     Indication: HEPATITIS C
     Dosage: 3 G, UNK
     Route: 048
     Dates: start: 20091016, end: 20100416
  9. FLUCONAZOLE [Concomitant]
     Dosage: 200 MG, UNK
     Route: 048
     Dates: start: 20091016, end: 20100416
  10. RED BLOOD CELLS [Concomitant]
     Dosage: 2 UNITS EVERY WEEK
     Dates: start: 20091016, end: 20100416
  11. PLATELETS [Concomitant]
     Dosage: 15 UNITS TWICE PER WEEK FROM
     Dates: start: 20091016, end: 20100416

REACTIONS (1)
  - PULMONARY ALVEOLAR HAEMORRHAGE [None]
